FAERS Safety Report 12093470 (Version 1)
Quarter: 2016Q1

REPORT INFORMATION
  Report Type: Spontaneous
  Country: GB (occurrence: None)
  Receive Date: 20160217
  Receipt Date: 20160217
  Transmission Date: 20160526
  Serious: Yes (Other)
  Sender: FDA-Public Use
  Company Number: 2016-02515

PATIENT
  Sex: Female

DRUGS (2)
  1. FUROSEMIDE (UNKNOWN) (FUROSEMIDE) UNK, UNKUNK [Suspect]
     Active Substance: FUROSEMIDE
     Indication: PRODUCT USED FOR UNKNOWN INDICATION
  2. DULCOLAX (BISACODYL) [Concomitant]
     Active Substance: BISACODYL

REACTIONS (11)
  - Oropharyngeal pain [None]
  - Anaemia [None]
  - Loose tooth [None]
  - Thyroid disorder [None]
  - White blood cell count decreased [None]
  - Pyrexia [None]
  - Joint swelling [None]
  - Mouth ulceration [None]
  - Hot flush [None]
  - Blood disorder [None]
  - Hypotension [None]
